FAERS Safety Report 9003852 (Version 1)
Quarter: 2013Q1

REPORT INFORMATION
  Report Type: Spontaneous
  Country: US (occurrence: US)
  Receive Date: 20130108
  Receipt Date: 20130108
  Transmission Date: 20140127
  Serious: No
  Sender: FDA-Public Use
  Company Number: US-GLAXOSMITHKLINE-A0995439A

PATIENT
  Age: 77 Year
  Sex: Male

DRUGS (14)
  1. LOVAZA [Suspect]
     Indication: BLOOD TRIGLYCERIDES INCREASED
     Dosage: 2CAP TWICE PER DAY
     Route: 048
     Dates: start: 201009, end: 20120921
  2. BENICAR [Concomitant]
  3. NEXIUM [Concomitant]
  4. PRILOSEC [Concomitant]
  5. MULTIVITAMIN [Concomitant]
  6. ZINC [Concomitant]
  7. COPPER [Concomitant]
  8. METALYSE [Concomitant]
  9. CALCIUM [Concomitant]
  10. VITAMIN D [Concomitant]
  11. VITAMIN E [Concomitant]
  12. GINSENG [Concomitant]
  13. GLUCOSAMINE + CHONDROITIN [Concomitant]
  14. CPAP MACHINE [Concomitant]

REACTIONS (2)
  - Gastritis [Not Recovered/Not Resolved]
  - Low density lipoprotein increased [Unknown]
